FAERS Safety Report 20689794 (Version 1)
Quarter: 2022Q2

REPORT INFORMATION
  Report Type: Spontaneous
  Country: SK (occurrence: None)
  Receive Date: 20220408
  Receipt Date: 20220408
  Transmission Date: 20220720
  Serious: Yes (Other)
  Sender: FDA-Public Use
  Company Number: SK-Fresenius Kabi-FK202203983

PATIENT
  Age: 65 Year
  Sex: Male

DRUGS (2)
  1. GEMCITABINE [Suspect]
     Active Substance: GEMCITABINE
     Indication: Prostate cancer
     Dosage: FIRST CYCLE OF NEOADJUVANT CHEMOTHERAPY?HE COMPLETED A TOTAL OF FOUR CYCLES
     Route: 042
     Dates: start: 202007
  2. CISPLATIN [Suspect]
     Active Substance: CISPLATIN
     Indication: Prostate cancer
     Dosage: IN COMBINATION WITH CISPLATIN 140 MG I.V. WITH G-CSF SUPPORT?FIRST CYCLE OF NEOADJUVANT CHEMOTHERAPY
     Route: 042
     Dates: start: 202007

REACTIONS (1)
  - Haematotoxicity [Unknown]
